FAERS Safety Report 18871505 (Version 1)
Quarter: 2021Q1

REPORT INFORMATION
  Report Type: Spontaneous
  Country: US (occurrence: US)
  Receive Date: 20210209
  Receipt Date: 20210209
  Transmission Date: 20210420
  Serious: Yes (Disabling)
  Sender: FDA-Public Use
  Company Number: None

PATIENT
  Age: 32 Year
  Sex: Male

DRUGS (4)
  1. TAMOXIFEN [Suspect]
     Active Substance: TAMOXIFEN
     Indication: BIPOLAR DISORDER
     Dosage: ?          QUANTITY:7 TABLET(S);?
     Route: 048
  2. ALLOPURINOL. [Concomitant]
     Active Substance: ALLOPURINOL
  3. CLOZAPINE. [Concomitant]
     Active Substance: CLOZAPINE
  4. TAMOXIFEN [Suspect]
     Active Substance: TAMOXIFEN
     Indication: MANIA
     Dosage: ?          QUANTITY:7 TABLET(S);?
     Route: 048

REACTIONS (5)
  - Blindness [None]
  - Macular oedema [None]
  - Corneal deposits [None]
  - Off label use [None]
  - Cystoid macular oedema [None]

NARRATIVE: CASE EVENT DATE: 20180701
